FAERS Safety Report 6119697-3 (Version None)
Quarter: 2009Q1

REPORT INFORMATION
  Report Type: 
  Country: None (occurrence: None)
  Receive Date: 20090316
  Receipt Date: 20090309
  Transmission Date: 20090719
  Serious: Yes (Death, Other)
  Sender: FDA-Public Use
  Company Number: US-PFIZER INC-2008059654

PATIENT
  Sex: Male
  Weight: 122.9 kg

DRUGS (1)
  1. REVATIO [Suspect]
     Indication: PULMONARY HYPERTENSION
     Route: 048
     Dates: start: 20071201, end: 20080101

REACTIONS (3)
  - APNOEA [None]
  - ATRIAL FIBRILLATION [None]
  - PULMONARY ARTERIAL HYPERTENSION [None]
